FAERS Safety Report 4333865-2 (Version None)
Quarter: 2004Q2

REPORT INFORMATION
  Report Type: 
  Country: None (occurrence: None)
  Receive Date: 20040402
  Receipt Date: 20040319
  Transmission Date: 20050107
  Serious: Yes (Other)
  Sender: FDA-Public Use
  Company Number: S04-USA-01556-01

PATIENT

DRUGS (1)
  1. LEXAPRO [Suspect]

REACTIONS (1)
  - HAEMORRHAGE [None]
